FAERS Safety Report 15747119 (Version 1)
Quarter: 2018Q4

REPORT INFORMATION
  Report Type: Spontaneous
  Country: US (occurrence: US)
  Receive Date: 20181220
  Receipt Date: 20181220
  Transmission Date: 20190205
  Serious: Yes (Hospitalization)
  Sender: FDA-Public Use
  Company Number: US-PRINSTON PHARMACEUTICAL INC.-2018PRN01229

PATIENT
  Sex: Male
  Weight: 88.2 kg

DRUGS (19)
  1. CARVEDILOL. [Suspect]
     Active Substance: CARVEDILOL
     Dosage: UNK
     Dates: end: 201806
  2. ASPIRIN. [Concomitant]
     Active Substance: ASPIRIN
     Dosage: 81 MG 1X/DAY
  3. PRESERVISION [Concomitant]
     Active Substance: MINERALS\VITAMINS
  4. EPOGEN [Concomitant]
     Active Substance: ERYTHROPOIETIN
     Dosage: 1X/WEEK
     Route: 030
  5. VENOFER [Concomitant]
     Active Substance: IRON SUCROSE
     Dosage: DOSE VARIES DEPENDING ON MONTHLY BLOOD WORK
     Route: 042
  6. POLY IRON [Concomitant]
     Active Substance: DIETARY SUPPLEMENT
     Dosage: 150 UNK, 1X/DAY
  7. VELPHORO [Concomitant]
     Active Substance: FERRIC OXYHYDROXIDE
     Dosage: 500 MG WITH EACH MEAL
  8. WARFARIN [Concomitant]
     Active Substance: WARFARIN
     Dosage: UNK, 3X/WEEK (M, W, F)
  9. CEPHALEXIN. [Concomitant]
     Active Substance: CEPHALEXIN
     Dosage: 00 MG, 1X/DAY
  10. LASIX [Concomitant]
     Active Substance: FUROSEMIDE
     Dosage: 80 MG, 2X/DAY
     Dates: start: 2012
  11. PROPECIA [Concomitant]
     Active Substance: FINASTERIDE
     Dosage: 1 MG, 1X/DAY
  12. CARVEDILOL. [Suspect]
     Active Substance: CARVEDILOL
     Dosage: 6 MG, 2X/DAY
     Dates: start: 201806
  13. ALLOPURINOL. [Concomitant]
     Active Substance: ALLOPURINOL
     Dosage: 300 MG, 1X/DAY
  14. FENOFIBRATE. [Concomitant]
     Active Substance: FENOFIBRATE
     Dosage: 134 MG, 1X/DAY
  15. LASIX [Concomitant]
     Active Substance: FUROSEMIDE
     Dosage: UNK
     Dates: start: 1994, end: 2012
  16. VALSARTAN. [Suspect]
     Active Substance: VALSARTAN
     Indication: CARDIAC FAILURE
     Dosage: 80 MG, 2X/DAY
     Route: 048
     Dates: start: 20180131, end: 20180412
  17. GENTAMYCIN [Concomitant]
     Active Substance: GENTAMICIN
     Dosage: TO STOMA SITE
     Route: 061
  18. LIPITOR [Concomitant]
     Active Substance: ATORVASTATIN CALCIUM
     Dosage: 80 MG, 1X/DAY
  19. MULTIVITAMIN [Concomitant]
     Active Substance: VITAMINS

REACTIONS (3)
  - Hypotension [Recovered/Resolved]
  - Peritonitis [Unknown]
  - Alopecia [Recovering/Resolving]

NARRATIVE: CASE EVENT DATE: 2018
